FAERS Safety Report 8318879-X (Version None)
Quarter: 2012Q2

REPORT INFORMATION
  Report Type: 
  Country: None (occurrence: None)
  Receive Date: 20120427
  Receipt Date: 20120423
  Transmission Date: 20120825
  Serious: Yes (Other)
  Sender: FDA-Public Use
  Company Number: JP-PFIZER INC-2012075234

PATIENT
  Age: 68 Year
  Sex: Female
  Weight: 46.5 kg

DRUGS (5)
  1. LYRICA [Suspect]
     Dosage: 75 MG, 2X/DAY
     Route: 048
     Dates: start: 20111124, end: 20120325
  2. VIVIANT [Concomitant]
     Dosage: 20 MG, 1X/DAY
     Route: 048
     Dates: start: 20101103, end: 20120405
  3. LYRICA [Suspect]
     Dosage: 100 MG/DAY
     Route: 048
     Dates: start: 20111110, end: 20111123
  4. LYRICA [Suspect]
     Indication: COMPRESSION FRACTURE
     Dosage: 25 MG, 2X/DAY
     Route: 048
     Dates: start: 20111103, end: 20111109
  5. LYRICA [Suspect]
     Dosage: 25 MG, 2X/DAY
     Route: 048
     Dates: start: 20120326, end: 20120405

REACTIONS (2)
  - RENAL FAILURE [None]
  - CARDIAC FAILURE [None]
